FAERS Safety Report 7501393-9 (Version None)
Quarter: 2011Q2

REPORT INFORMATION
  Report Type: 
  Country: None (occurrence: None)
  Receive Date: 20110524
  Receipt Date: 20110513
  Transmission Date: 20111010
  Serious: Yes (Hospitalization, Other)
  Sender: FDA-Public Use
  Company Number: US-BAYER-201021115NA

PATIENT
  Age: 20 Year
  Sex: Female
  Weight: 90.703 kg

DRUGS (5)
  1. NAPROXEN [Concomitant]
  2. YASMIN [Suspect]
     Indication: CONTRACEPTION
     Route: 048
     Dates: start: 20070901
  3. ASPIRIN [Concomitant]
     Dosage: 81 MG, UNK
     Route: 048
     Dates: start: 20080101
  4. TUMS [CALCIUM CARBONATE] [Concomitant]
     Indication: DYSPEPSIA
     Dosage: UNK
     Dates: start: 20090101
  5. ACE INHIBITOR NOS [Concomitant]

REACTIONS (2)
  - DEEP VEIN THROMBOSIS [None]
  - CHOLECYSTECTOMY [None]
